FAERS Safety Report 19200508 (Version 1)
Quarter: 2021Q2

REPORT INFORMATION
  Report Type: Spontaneous
  Country: US (occurrence: US)
  Receive Date: 20210430
  Receipt Date: 20210430
  Transmission Date: 20210717
  Serious: Yes (Death)
  Sender: FDA-Public Use
  Company Number: US-ONCOPEPPR-00017

PATIENT
  Sex: Female
  Weight: 37 kg

DRUGS (1)
  1. MELFLUFEN [Suspect]
     Active Substance: MELPHALAN FLUFENAMIDE HYDROCHLORIDE
     Indication: PLASMA CELL MYELOMA
     Dosage: TIME INTERVAL: CYCLICAL
     Route: 065
     Dates: start: 20210408

REACTIONS (1)
  - General physical health deterioration [Fatal]

NARRATIVE: CASE EVENT DATE: 20210413
